FAERS Safety Report 5193540-1 (Version None)
Quarter: 2006Q4

REPORT INFORMATION
  Report Type: 
  Country: None (occurrence: None)
  Receive Date: 20061228
  Receipt Date: 20060717
  Transmission Date: 20070319
  Serious: No
  Sender: FDA-Public Use
  Company Number: US-GLAXOSMITHKLINE-A0612491A

PATIENT
  Age: 71 Year
  Sex: Female

DRUGS (10)
  1. FLUTICASONE PROPIONATE [Suspect]
     Dosage: 50MCG TWICE PER DAY
     Route: 045
     Dates: start: 20060501
  2. COREG [Concomitant]
  3. AMIODARONE HCL [Concomitant]
  4. LIPITOR [Concomitant]
  5. PLAVIX [Concomitant]
  6. SYNTHROID [Concomitant]
  7. CELEXA [Concomitant]
  8. ACCUPRIL [Concomitant]
  9. TRAVATAN [Concomitant]
  10. ASPIRIN [Concomitant]

REACTIONS (1)
  - DRUG INEFFECTIVE [None]
